FAERS Safety Report 18578428 (Version 1)
Quarter: 2020Q4

REPORT INFORMATION
  Report Type: Spontaneous
  Country: US (occurrence: US)
  Receive Date: 20201202
  Receipt Date: 20201202
  Transmission Date: 20210114
  Serious: Yes (Hospitalization)
  Sender: FDA-Public Use
  Company Number: None

PATIENT
  Age: 74 Year
  Sex: Male
  Weight: 78.93 kg

DRUGS (2)
  1. DABIGATRAN (DABIGATRAN ETEXILATE 150MG CAP, ORAL) [Suspect]
     Active Substance: DABIGATRAN
     Indication: ATRIAL FIBRILLATION
     Route: 048
     Dates: start: 20160526, end: 20190122
  2. NOT SPECIFIED [Suspect]
     Active Substance: UNSPECIFIED INGREDIENT
     Indication: ATRIAL FIBRILLATION
     Route: 048
     Dates: start: 20170626, end: 20190122

REACTIONS (8)
  - Gastritis [None]
  - Nausea [None]
  - Vomiting [None]
  - Faeces discoloured [None]
  - Duodenitis [None]
  - Anaemia [None]
  - Diarrhoea [None]
  - Oesophageal polyp [None]

NARRATIVE: CASE EVENT DATE: 20190122
